FAERS Safety Report 6231391-7 (Version None)
Quarter: 2009Q2

REPORT INFORMATION
  Report Type: 
  Country: None (occurrence: None)
  Receive Date: 20090616
  Receipt Date: 20090611
  Transmission Date: 20091009
  Serious: Yes (Hospitalization)
  Sender: FDA-Public Use
  Company Number: BE-B.I. PHARMACEUTICALS,INC./RIDGEFIELD-2007-BL-00186BL

PATIENT
  Sex: Male
  Weight: 75 kg

DRUGS (6)
  1. VIRAMUNE [Suspect]
     Indication: HIV INFECTION
     Dosage: 400MG
     Route: 048
     Dates: start: 20000804
  2. VIRAMUNE [Suspect]
     Route: 048
     Dates: start: 20071127, end: 20071127
  3. COMBIVIR [Concomitant]
     Indication: HIV INFECTION
     Dosage: 150/250 MG BID
     Route: 048
     Dates: start: 20000804
  4. PAROXETINE HCL [Concomitant]
     Indication: DEPRESSION
     Dosage: 20MG
     Route: 048
     Dates: start: 20050101
  5. PRAVASTATIN [Concomitant]
     Indication: HYPERCHOLESTEROLAEMIA
     Dosage: 40MG
     Route: 048
     Dates: start: 20060101
  6. SIMVASTATIN [Concomitant]
     Route: 048

REACTIONS (2)
  - OVERDOSE [None]
  - SUICIDE ATTEMPT [None]
